FAERS Safety Report 4873680-4 (Version None)
Quarter: 2006Q1

REPORT INFORMATION
  Report Type: 
  Country: None (occurrence: None)
  Receive Date: 20060104
  Receipt Date: 20060104
  Transmission Date: 20060701
  Serious: Yes (Life-Threatening, Hospitalization)
  Sender: FDA-Public Use
  Company Number: None

PATIENT
  Age: 26 Year
  Sex: Female

DRUGS (1)
  1. XANAX [Suspect]
     Dosage: 20MG  1X
     Dates: start: 20041206, end: 20041206

REACTIONS (1)
  - INTENTIONAL OVERDOSE [None]
